FAERS Safety Report 19433600 (Version 2)
Quarter: 2021Q2

REPORT INFORMATION
  Report Type: Spontaneous
  Country: GB (occurrence: GB)
  Receive Date: 20210618
  Receipt Date: 20210628
  Transmission Date: 20210717
  Serious: Yes (Hospitalization)
  Sender: FDA-Public Use
  Company Number: GB-TEVA-2021-GB-1924581

PATIENT
  Age: 5 Decade
  Sex: Male

DRUGS (7)
  1. CLARITHROMYCIN. [Suspect]
     Active Substance: CLARITHROMYCIN
     Indication: PNEUMONIA
     Dosage: 1000 MILLIGRAM DAILY;
     Route: 048
  2. NICOTINE. [Concomitant]
     Active Substance: NICOTINE
     Indication: DRUG THERAPY
     Route: 050
  3. METHADONE [Interacting]
     Active Substance: METHADONE HYDROCHLORIDE
     Indication: DRUG DEPENDENCE
     Dosage: 60 MILLIGRAM DAILY;
     Route: 065
  4. NALOXONE [Suspect]
     Active Substance: NALOXONE
     Indication: TOXICITY TO VARIOUS AGENTS
     Route: 050
  5. AMOXICILLIN. [Concomitant]
     Active Substance: AMOXICILLIN
     Indication: PNEUMONIA
     Route: 048
  6. NALOXONE [Suspect]
     Active Substance: NALOXONE
     Indication: TOXICITY TO VARIOUS AGENTS
     Dosage: ADMINISTERED THRICE AND LATER SHIFTED TO INFUSION
     Route: 040
  7. AROVI [Concomitant]
     Indication: PRODUCT USED FOR UNKNOWN INDICATION
     Route: 058

REACTIONS (8)
  - Toxicity to various agents [Recovering/Resolving]
  - Vomiting [Unknown]
  - Respiratory failure [Recovering/Resolving]
  - Drug interaction [Recovering/Resolving]
  - Miosis [Recovered/Resolved]
  - Rhinorrhoea [Unknown]
  - Depressed level of consciousness [Recovering/Resolving]
  - Electrocardiogram QT prolonged [Recovered/Resolved]
